FAERS Safety Report 8398418-8 (Version None)
Quarter: 2012Q2

REPORT INFORMATION
  Report Type: 
  Country: None (occurrence: None)
  Receive Date: 20120531
  Receipt Date: 20120522
  Transmission Date: 20120825
  Serious: No
  Sender: FDA-Public Use
  Company Number: US-ASTRAZENECA-2011SE34055

PATIENT
  Age: 58 Year
  Sex: Female

DRUGS (6)
  1. SEROQUEL [Suspect]
     Indication: BIPOLAR DISORDER
     Route: 048
  2. DEPAKOTE [Concomitant]
  3. PERCOCET [Concomitant]
  4. PRISTIQ [Concomitant]
  5. SEROQUEL [Suspect]
     Route: 048
  6. XANAX [Concomitant]

REACTIONS (5)
  - DISORIENTATION [None]
  - MOOD SWINGS [None]
  - NERVOUSNESS [None]
  - ADVERSE EVENT [None]
  - ADJUSTMENT DISORDER WITH MIXED ANXIETY AND DEPRESSED MOOD [None]
